FAERS Safety Report 11021037 (Version 1)
Quarter: 2015Q2

REPORT INFORMATION
  Report Type: Spontaneous
  Country: FR (occurrence: FR)
  Receive Date: 20150413
  Receipt Date: 20150413
  Transmission Date: 20150821
  Serious: Yes (Other)
  Sender: FDA-Public Use
  Company Number: FR-TEVA-552827ISR

PATIENT
  Age: 82 Year
  Sex: Female

DRUGS (1)
  1. VERAPAMIL TEVA LP 240MG [Suspect]
     Active Substance: VERAPAMIL HYDROCHLORIDE
     Dosage: 120 MILLIGRAM DAILY;
     Dates: start: 201502, end: 201503

REACTIONS (3)
  - Asthenia [Unknown]
  - Malaise [Recovered/Resolved]
  - Product substitution issue [Recovered/Resolved]

NARRATIVE: CASE EVENT DATE: 201502
